FAERS Safety Report 25981982 (Version 1)
Quarter: 2025Q4

REPORT INFORMATION
  Report Type: Report from Study
  Country: EU (occurrence: EU)
  Receive Date: 20251031
  Receipt Date: 20251031
  Transmission Date: 20260118
  Serious: Yes (Other)
  Sender: AUROBINDO
  Company Number: EU-ROCHE-2853410

PATIENT
  Age: 57 Year
  Sex: Female

DRUGS (10)
  1. MYCOPHENOLIC ACID [Suspect]
     Active Substance: MYCOPHENOLIC ACID
     Indication: Prophylaxis against transplant rejection
     Dosage: 10 MILLIGRAM/KILOGRAM, ONCE A DAY
     Route: 065
  2. MYCOPHENOLIC ACID [Suspect]
     Active Substance: MYCOPHENOLIC ACID
     Indication: Adult T-cell lymphoma/leukaemia
  3. BUSULFAN [Suspect]
     Active Substance: BUSULFAN
     Indication: Prophylaxis against transplant rejection
     Dosage: 3.2 MILLIGRAM/KILOGRAM, ONCE A DAY, ON DAYS -6 TO -3
     Route: 042
  4. CYCLOPHOSPHAMIDE [Suspect]
     Active Substance: CYCLOPHOSPHAMIDE
     Indication: Prophylaxis against transplant rejection
     Dosage: 50 MILLIGRAM/KILOGRAM, ONCE A DAY, ON DAYS +3 AND +4
     Route: 065
  5. RITUXIMAB [Suspect]
     Active Substance: RITUXIMAB
     Indication: Prophylaxis against transplant rejection
     Dosage: 375 MILLIGRAM/SQ. METER, EVERY WEEK
     Route: 042
  6. RITUXIMAB [Suspect]
     Active Substance: RITUXIMAB
     Indication: Adult T-cell lymphoma/leukaemia
  7. TACROLIMUS [Suspect]
     Active Substance: TACROLIMUS
     Indication: Prophylaxis against transplant rejection
     Dosage: 0.06 MILLIGRAM/KILOGRAM, ONCE A DAY
     Route: 065
  8. TACROLIMUS [Suspect]
     Active Substance: TACROLIMUS
     Indication: Adult T-cell lymphoma/leukaemia
  9. HUMAN IMMUNOGLOBULIN G [Suspect]
     Active Substance: HUMAN IMMUNOGLOBULIN G
     Indication: Adult T-cell lymphoma/leukaemia
     Dosage: UNK (IVIG X5 DAYS)
     Route: 042
  10. AMINO ACIDS\ELECTROLYTES NOS [Suspect]
     Active Substance: AMINO ACIDS\ELECTROLYTES NOS
     Indication: Adult T-cell lymphoma/leukaemia
     Dosage: UNK
     Route: 065

REACTIONS (5)
  - Spinal cord disorder [Unknown]
  - Cytomegalovirus infection reactivation [Recovering/Resolving]
  - Myelitis [Unknown]
  - Off label use [Unknown]
  - Drug effective for unapproved indication [Unknown]
